FAERS Safety Report 6074841-1 (Version None)
Quarter: 2009Q1

REPORT INFORMATION
  Report Type: 
  Country: None (occurrence: None)
  Receive Date: 20090212
  Receipt Date: 20090205
  Transmission Date: 20090719
  Serious: Yes (Hospitalization, Other)
  Sender: FDA-Public Use
  Company Number: PHHY2009DE02432

PATIENT
  Sex: Male
  Weight: 120 kg

DRUGS (2)
  1. RASILEZ [Suspect]
     Indication: HYPERTENSION
     Dosage: 150 MG DAILY
     Dates: start: 20081006, end: 20081208
  2. BETA BLOCKING AGENTS [Concomitant]
     Dosage: UNK DF, BID

REACTIONS (14)
  - BLOOD CREATININE INCREASED [None]
  - BLOOD TRIGLYCERIDES INCREASED [None]
  - CORONARY ARTERY DISEASE [None]
  - CREATININE RENAL CLEARANCE DECREASED [None]
  - DYSPNOEA [None]
  - ELECTROCARDIOGRAM ABNORMAL [None]
  - FATIGUE [None]
  - GLYCOSYLATED HAEMOGLOBIN INCREASED [None]
  - GOUT [None]
  - HYPERTENSION [None]
  - MICROALBUMINURIA [None]
  - PALPITATIONS [None]
  - PROTEIN URINE PRESENT [None]
  - VENTRICULAR EXTRASYSTOLES [None]
